FAERS Safety Report 5830029-8 (Version None)
Quarter: 2008Q3

REPORT INFORMATION
  Report Type: 
  Country: None (occurrence: None)
  Receive Date: 20080801
  Receipt Date: 20080728
  Transmission Date: 20090109
  Serious: Yes (Other)
  Sender: FDA-Public Use
  Company Number: US-JNJCH-2008019730

PATIENT
  Age: 6 Year
  Sex: Female
  Weight: 26.3 kg

DRUGS (1)
  1. POLYSPORIN OINTMENT [Suspect]
     Indication: WOUND
     Dosage: TEXT:COVER AREA ONCE
     Route: 061

REACTIONS (5)
  - EYE ROLLING [None]
  - HYPERHIDROSIS [None]
  - LOSS OF CONSCIOUSNESS [None]
  - SHOCK [None]
  - TREMOR [None]
